FAERS Safety Report 15634919 (Version 2)
Quarter: 2018Q4

REPORT INFORMATION
  Report Type: Spontaneous
  Country: JP (occurrence: JP)
  Receive Date: 20181119
  Receipt Date: 20181212
  Transmission Date: 20190205
  Serious: Yes (Hospitalization)
  Sender: FDA-Public Use
  Company Number: JP-TAKEDA-2018TJP028715

PATIENT
  Age: 69 Year
  Sex: Female
  Weight: 49 kg

DRUGS (3)
  1. NESINA [Suspect]
     Active Substance: ALOGLIPTIN BENZOATE
     Indication: DIABETES MELLITUS
     Dosage: 25 MG, UNK
     Route: 048
  2. OLMESARTAN [Concomitant]
     Active Substance: OLMESARTAN
     Indication: HYPERTENSION
     Dosage: 20 MG, UNK
     Route: 048
  3. GLIMEPIRIDE. [Suspect]
     Active Substance: GLIMEPIRIDE
     Indication: DIABETES MELLITUS
     Dosage: 1 MG, UNK
     Route: 048

REACTIONS (1)
  - Diabetes mellitus inadequate control [Recovered/Resolved]
